FAERS Safety Report 8443412-1 (Version None)
Quarter: 2012Q2

REPORT INFORMATION
  Report Type: 
  Country: None (occurrence: None)
  Receive Date: 20120612
  Receipt Date: 20120612
  Transmission Date: 20120825
  Serious: Yes (Disabling, Other)
  Sender: FDA-Public Use
  Company Number: None

PATIENT
  Sex: Male
  Weight: 78.0187 kg

DRUGS (1)
  1. TRELSTAR [Suspect]
     Indication: BENIGN NEOPLASM OF PROSTATE
     Dosage: 11.25 MG EVERY 12 WEEKS ESTIMATED TO LAST 3 MONTHS
     Dates: start: 20120330

REACTIONS (5)
  - POLLAKIURIA [None]
  - ASTHENIA [None]
  - INITIAL INSOMNIA [None]
  - HOT FLUSH [None]
  - LIBIDO DECREASED [None]
